FAERS Safety Report 4984737-1 (Version None)
Quarter: 2006Q2

REPORT INFORMATION
  Report Type: 
  Country: None (occurrence: None)
  Receive Date: 20060427
  Receipt Date: 20050719
  Transmission Date: 20061013
  Serious: No
  Sender: FDA-Public Use
  Company Number: US-MERCK-0507USA03128

PATIENT
  Age: 53 Year
  Sex: Female
  Weight: 92 kg

DRUGS (3)
  1. VIOXX [Suspect]
     Indication: PLANTAR FASCIITIS
     Route: 048
     Dates: start: 20021001, end: 20021029
  2. VIOXX [Suspect]
     Route: 048
     Dates: start: 20021030, end: 20021106
  3. VIOXX [Suspect]
     Route: 048
     Dates: start: 20021107

REACTIONS (7)
  - ATRIAL FIBRILLATION [None]
  - ATRIAL FLUTTER [None]
  - CARDIAC DISORDER [None]
  - EMOTIONAL DISTRESS [None]
  - INJURY [None]
  - NO THERAPEUTIC RESPONSE [None]
  - PAIN [None]
